FAERS Safety Report 5190292-6 (Version None)
Quarter: 2006Q4

REPORT INFORMATION
  Report Type: 
  Country: None (occurrence: None)
  Receive Date: 20061222
  Receipt Date: 20061214
  Transmission Date: 20070319
  Serious: Yes (Other)
  Sender: FDA-Public Use
  Company Number: PHBS2006SE19408

PATIENT
  Age: 76 Year
  Sex: Male

DRUGS (5)
  1. ZOMETA [Suspect]
     Indication: MULTIPLE MYELOMA
  2. TRAMADOL HCL [Concomitant]
  3. ALVEDON [Concomitant]
     Route: 048
  4. DELTISON [Concomitant]
     Route: 048
  5. ALKERAN [Concomitant]

REACTIONS (1)
  - OSTEONECROSIS [None]
